FAERS Safety Report 7389534-8 (Version None)
Quarter: 2011Q2

REPORT INFORMATION
  Report Type: 
  Country: None (occurrence: None)
  Receive Date: 20110401
  Receipt Date: 20110321
  Transmission Date: 20111010
  Serious: Yes (Hospitalization)
  Sender: FDA-Public Use
  Company Number: PHHY2011US23089

PATIENT
  Sex: Male

DRUGS (2)
  1. TASIGNA [Interacting]
     Dosage: UNK
  2. TASIGNA [Suspect]
     Indication: CHRONIC MYELOID LEUKAEMIA
     Dosage: TEMPORARILY DISCONTINUED
     Route: 048
     Dates: start: 20110119

REACTIONS (5)
  - PYREXIA [None]
  - CARDIAC FAILURE [None]
  - OEDEMA PERIPHERAL [None]
  - DRUG INTERACTION [None]
  - NASAL CONGESTION [None]
